FAERS Safety Report 18305341 (Version 1)
Quarter: 2020Q3

REPORT INFORMATION
  Report Type: Spontaneous
  Country: GB (occurrence: GB)
  Receive Date: 20200924
  Receipt Date: 20200924
  Transmission Date: 20201103
  Serious: Yes (Other)
  Sender: FDA-Public Use
  Company Number: GB-TEVA-2020-GB-1829672

PATIENT
  Age: 78 Year
  Sex: Male
  Weight: 95.25 kg

DRUGS (5)
  1. ASPAR PHARMS ASPIRIN [Concomitant]
  2. DR REDDYS LABS UK CETIRIZINE [Concomitant]
  3. TAMFREX XL [Concomitant]
     Active Substance: TAMSULOSIN
  4. SANDOZ AMLODIPINE [Concomitant]
     Active Substance: AMLODIPINE MALEATE
  5. ISOSORBIDE MONONITRATE. [Suspect]
     Active Substance: ISOSORBIDE MONONITRATE
     Indication: ANGINA PECTORIS
     Dosage: 20 MILLIGRAM
     Route: 048
     Dates: start: 20200723, end: 20200821

REACTIONS (10)
  - Constipation [Recovered/Resolved]
  - Dizziness [Recovered/Resolved]
  - Hunger [Recovered/Resolved]
  - Vision blurred [Recovered/Resolved]
  - Pollakiuria [Recovered/Resolved]
  - Hot flush [Recovered/Resolved]
  - Insomnia [Recovered/Resolved]
  - Headache [Recovered/Resolved]
  - Pruritus [Recovered/Resolved]
  - Asthenia [Recovered/Resolved]

NARRATIVE: CASE EVENT DATE: 20200728
